FAERS Safety Report 4674154-6 (Version None)
Quarter: 2005Q2

REPORT INFORMATION
  Report Type: 
  Country: None (occurrence: None)
  Receive Date: 20050524
  Receipt Date: 20050524
  Transmission Date: 20051028
  Serious: No
  Sender: FDA-Public Use
  Company Number: None

PATIENT
  Sex: Female
  Weight: 49 kg

DRUGS (3)
  1. FLUOROURACIL [Suspect]
     Dates: start: 20050509
  2. CISPLATIN [Suspect]
     Dates: start: 20050509
  3. RADIOTHERAPY (INDUCTION AND CONCURRANT) [Suspect]
     Dates: start: 20050509

REACTIONS (2)
  - MUCOSAL INFLAMMATION [None]
  - RADIATION SKIN INJURY [None]
